FAERS Safety Report 5781663-5 (Version None)
Quarter: 2008Q2

REPORT INFORMATION
  Report Type: 
  Country: None (occurrence: None)
  Receive Date: 20080619
  Receipt Date: 20080605
  Transmission Date: 20081010
  Serious: Yes (Disabling)
  Sender: FDA-Public Use
  Company Number: TPA2008A00848

PATIENT
  Age: 51 Year
  Sex: Female
  Weight: 133.8111 kg

DRUGS (2)
  1. ACTOS [Suspect]
     Indication: TYPE 2 DIABETES MELLITUS
     Dosage: 45 MG, 1 IN 1 D, PER ORAL
     Route: 048
  2. GLIPIZIDE [Concomitant]

REACTIONS (3)
  - ARTHRITIS [None]
  - FALL [None]
  - MENISCUS LESION [None]
